FAERS Safety Report 7116249-3 (Version None)
Quarter: 2010Q4

REPORT INFORMATION
  Report Type: 
  Country: None (occurrence: None)
  Receive Date: 20101122
  Receipt Date: 20100927
  Transmission Date: 20110411
  Serious: No
  Sender: FDA-Public Use
  Company Number: US-BAYER-201022201BCC

PATIENT
  Age: 62 Year
  Sex: Male
  Weight: 82 kg

DRUGS (2)
  1. ALEVE (CAPLET) [Suspect]
     Indication: ANKYLOSING SPONDYLITIS
     Dosage: UNIT DOSE: 220 MG
     Route: 048
     Dates: start: 20060101
  2. QUINAPRIL [Concomitant]

REACTIONS (1)
  - NO ADVERSE EVENT [None]
